FAERS Safety Report 9611988 (Version 2)
Quarter: 2013Q4

REPORT INFORMATION
  Report Type: Report from Study
  Country: DE (occurrence: DE)
  Receive Date: 20131010
  Receipt Date: 20131010
  Transmission Date: 20140711
  Serious: Yes (Hospitalization)
  Sender: FDA-Public Use
  Company Number: DE-MERCK-1309DEU008673

PATIENT
  Sex: Male

DRUGS (3)
  1. REBETOL [Suspect]
     Indication: CHRONIC HEPATITIS C
     Dosage: 1200 MG, EVERY DAY
     Route: 048
     Dates: start: 20120330, end: 20130228
  2. BOCEPREVIR [Suspect]
     Indication: CHRONIC HEPATITIS C
     Dosage: DAILY DOSE 1200 MG
     Route: 048
     Dates: start: 20120426, end: 20130228
  3. PEGASYS [Suspect]
     Indication: CHRONIC HEPATITIS C
     Dosage: 135 MICROGRAM, EVERY WEEK
     Route: 058
     Dates: start: 20120330, end: 20130228

REACTIONS (2)
  - Osteonecrosis [Unknown]
  - Haemoglobin decreased [Recovered/Resolved]
